FAERS Safety Report 25474488 (Version 2)
Quarter: 2025Q3

REPORT INFORMATION
  Report Type: Report from Study
  Country: MX (occurrence: MX)
  Receive Date: 20250624
  Receipt Date: 20250703
  Transmission Date: 20251020
  Serious: Yes (Other)
  Sender: NOVARTIS
  Company Number: MX-002147023-NVSC2025MX023027

PATIENT
  Age: 77 Year
  Sex: Female
  Weight: 83 kg

DRUGS (5)
  1. INCLISIRAN [Suspect]
     Active Substance: INCLISIRAN
     Indication: Blood cholesterol increased
     Route: 058
     Dates: start: 20240912
  2. INCLISIRAN [Suspect]
     Active Substance: INCLISIRAN
     Route: 065
     Dates: start: 20241212
  3. INDERAL [Concomitant]
     Active Substance: PROPRANOLOL HYDROCHLORIDE
     Indication: Tachycardia
     Dosage: 1 DOSAGE FORM, QD (1 OF 40 MG)
     Route: 048
  4. MICARDIS [Concomitant]
     Active Substance: TELMISARTAN
     Indication: Blood pressure increased
     Dosage: 1 DOSAGE FORM, QD (1 OF 40 MG)
     Route: 048
  5. LEVOTHYROXINE [Concomitant]
     Active Substance: LEVOTHYROXINE
     Indication: Hypothyroidism
     Dosage: 1 DOSAGE FORM, QD (1 OF 150MCG)
     Route: 048

REACTIONS (10)
  - Arrhythmia [Recovered/Resolved]
  - Influenza [Recovered/Resolved]
  - Cough [Recovered/Resolved]
  - Pain [Recovered/Resolved]
  - Fear [Recovered/Resolved]
  - Dysstasia [Recovered/Resolved]
  - Drug effect less than expected [Recovered/Resolved]
  - Inner ear inflammation [Recovering/Resolving]
  - Dysphonia [Recovered/Resolved]
  - Vertigo [Recovered/Resolved]

NARRATIVE: CASE EVENT DATE: 20241213
